FAERS Safety Report 23889834 (Version 1)
Quarter: 2024Q2

REPORT INFORMATION
  Report Type: Other
  Country: US (occurrence: US)
  Receive Date: 20240523
  Receipt Date: 20240523
  Transmission Date: 20240716
  Serious: Yes (Other)
  Sender: FDA-Public Use
  Company Number: US-Eywa Pharma Inc.-2157344

PATIENT
  Age: 67 Year
  Sex: Male

DRUGS (5)
  1. BACLOFEN [Suspect]
     Active Substance: BACLOFEN
     Indication: Hiccups
     Route: 065
  2. INSULIN NOS [Concomitant]
     Active Substance: INSULIN NOS
     Route: 065
  3. LIDOCAINE [Concomitant]
     Active Substance: LIDOCAINE
     Route: 065
  4. CHLORPROMAZINE [Concomitant]
     Active Substance: CHLORPROMAZINE
     Route: 065
  5. METOCLOPRAMIDE [Concomitant]
     Active Substance: METOCLOPRAMIDE
     Route: 065

REACTIONS (2)
  - Delirium [Unknown]
  - Drug ineffective for unapproved indication [Unknown]
